FAERS Safety Report 7152399-3 (Version None)
Quarter: 2010Q4

REPORT INFORMATION
  Report Type: 
  Country: None (occurrence: None)
  Receive Date: 20101124
  Receipt Date: 20101118
  Transmission Date: 20110411
  Serious: Yes (Hospitalization)
  Sender: FDA-Public Use
  Company Number: CIP10002792

PATIENT
  Age: 85 Year
  Sex: Female

DRUGS (2)
  1. ACTONEL [Suspect]
     Indication: OSTEOPOROSIS
     Dosage: 2.5 MG DAILY, ORAL
     Route: 048
     Dates: start: 20070601, end: 20090601
  2. ANTIHYPERTENSIVES [Concomitant]

REACTIONS (3)
  - OSTEOMYELITIS [None]
  - POST PROCEDURAL DISCHARGE [None]
  - PURULENT DISCHARGE [None]
